FAERS Safety Report 8876202 (Version 1)
Quarter: 2012Q4

REPORT INFORMATION
  Report Type: 
  Country: US (occurrence: US)
  Receive Date: 20121023
  Receipt Date: 20121023
  Transmission Date: 20130627
  Serious: Yes (Other)
  Sender: FDA-Public Use
  Company Number: US-WATSON-2012-17823

PATIENT
  Age: 81 Year
  Sex: Male

DRUGS (1)
  1. CIPROFLOXACIN HYDROCHLORIDE [Suspect]
     Indication: INFECTION
     Route: 048

REACTIONS (3)
  - Tendon rupture [Unknown]
  - Deafness [Not Recovered/Not Resolved]
  - Dysphonia [Unknown]
